FAERS Safety Report 7325691-7 (Version None)
Quarter: 2011Q1

REPORT INFORMATION
  Report Type: 
  Country: None (occurrence: None)
  Receive Date: 20110216
  Receipt Date: 20110210
  Transmission Date: 20110831
  Serious: Yes (Hospitalization, Other)
  Sender: FDA-Public Use
  Company Number: 2006-139623-NL

PATIENT
  Age: 36 Year
  Sex: Female
  Weight: 54.4316 kg

DRUGS (2)
  1. SYNTHROID [Concomitant]
  2. NUVARING [Suspect]
     Indication: CONTRACEPTION
     Dosage: 1 DF; VAG
     Route: 067
     Dates: start: 20030903, end: 20060305

REACTIONS (26)
  - ABDOMINAL PAIN UPPER [None]
  - OVARIAN CYST [None]
  - PULMONARY EMBOLISM [None]
  - MIGRAINE [None]
  - BREAST PROSTHESIS USER [None]
  - GASTROOESOPHAGEAL REFLUX DISEASE [None]
  - THROMBOSIS [None]
  - IMPAIRED WORK ABILITY [None]
  - VITAMIN B12 DEFICIENCY [None]
  - LEUKOCYTOSIS [None]
  - MULTIPLE INJURIES [None]
  - AORTIC VALVE INCOMPETENCE [None]
  - GENE MUTATION IDENTIFICATION TEST POSITIVE [None]
  - HAEMATURIA [None]
  - UNEVALUABLE EVENT [None]
  - MITRAL VALVE INCOMPETENCE [None]
  - PULMONARY HYPERTENSION [None]
  - PULMONARY INFARCTION [None]
  - HYPERCOAGULATION [None]
  - LUNG INFILTRATION [None]
  - AUTOIMMUNE THYROIDITIS [None]
  - LOBAR PNEUMONIA [None]
  - BACTERAEMIA [None]
  - SEPSIS [None]
  - MITRAL VALVE PROLAPSE [None]
  - UTERINE LEIOMYOMA [None]
